FAERS Safety Report 17537908 (Version 2)
Quarter: 2020Q2

REPORT INFORMATION
  Report Type: Spontaneous
  Country: DE (occurrence: DE)
  Receive Date: 20200313
  Receipt Date: 20200402
  Transmission Date: 20200713
  Serious: Yes (Other)
  Sender: FDA-Public Use
  Company Number: DE-PFIZER INC-2020105884

PATIENT

DRUGS (1)
  1. CYTOTEC [Suspect]
     Active Substance: MISOPROSTOL
     Indication: LABOUR INDUCTION
     Dosage: 100 UG, UNK
     Route: 064
     Dates: start: 20150818, end: 20150818

REACTIONS (3)
  - Foetal heart rate decreased [Recovered/Resolved]
  - Neonatal hypoxia [Recovered/Resolved]
  - Foetal exposure during delivery [Recovered/Resolved]

NARRATIVE: CASE EVENT DATE: 20150818
